FAERS Safety Report 11525823 (Version 6)
Quarter: 2015Q4

REPORT INFORMATION
  Report Type: Report from Study
  Country: US (occurrence: US)
  Receive Date: 20150918
  Receipt Date: 20151216
  Transmission Date: 20160304
  Serious: Yes (Other)
  Sender: FDA-Public Use
  Company Number: PHEH2015US018125

PATIENT
  Age: 48 Year
  Sex: Female
  Weight: 95.24 kg

DRUGS (4)
  1. GILENYA [Suspect]
     Active Substance: FINGOLIMOD HYDROCHLORIDE
     Indication: MULTIPLE SCLEROSIS
     Dosage: 0.5 MG, QD
     Route: 048
  2. PAMELOR [Interacting]
     Active Substance: NORTRIPTYLINE HYDROCHLORIDE
     Dosage: UNK
     Route: 065
     Dates: start: 20151104
  3. GILENYA [Interacting]
     Active Substance: FINGOLIMOD HYDROCHLORIDE
     Dosage: 0.5 MG, QD
     Route: 048
     Dates: start: 20151102
  4. PAMELOR [Interacting]
     Active Substance: NORTRIPTYLINE HYDROCHLORIDE
     Indication: MIGRAINE
     Dosage: UNK
     Route: 065

REACTIONS (25)
  - Visual impairment [Unknown]
  - Tendon rupture [Unknown]
  - Fatigue [Unknown]
  - Muscle spasms [Unknown]
  - Pain [Unknown]
  - Vertigo [Unknown]
  - Diarrhoea [Unknown]
  - Drug interaction [Unknown]
  - Gait disturbance [Unknown]
  - Fall [Unknown]
  - Fracture [Recovering/Resolving]
  - Vomiting [Unknown]
  - Seizure [Unknown]
  - Migraine [Recovered/Resolved]
  - Nausea [Recovering/Resolving]
  - Multiple sclerosis relapse [Unknown]
  - Muscle twitching [Recovering/Resolving]
  - Pain in extremity [Unknown]
  - Arthralgia [Unknown]
  - Anaemia [Unknown]
  - Muscular weakness [Unknown]
  - Malaise [Recovering/Resolving]
  - Depression [Unknown]
  - Muscle disorder [Recovering/Resolving]
  - Gastroenteritis viral [Unknown]

NARRATIVE: CASE EVENT DATE: 20151102
